FAERS Safety Report 20305570 (Version 1)
Quarter: 2022Q1

REPORT INFORMATION
  Report Type: Spontaneous
  Country: None (occurrence: US)
  Receive Date: 20220106
  Receipt Date: 20220106
  Transmission Date: 20220423
  Serious: No
  Sender: FDA-Public Use
  Company Number: US-Nexgen Pharma, Inc.-2123676

PATIENT
  Age: 33 Year
  Sex: Male

DRUGS (1)
  1. CHENODAL [Suspect]
     Active Substance: CHENODIOL
     Indication: Glycogen storage disorder
     Route: 048
     Dates: start: 20211027

REACTIONS (2)
  - Abdominal discomfort [Unknown]
  - Decreased appetite [Unknown]
